FAERS Safety Report 6669719-6 (Version None)
Quarter: 2010Q2

REPORT INFORMATION
  Report Type: 
  Country: None (occurrence: None)
  Receive Date: 20100402
  Receipt Date: 20100322
  Transmission Date: 20101027
  Serious: Yes (Death)
  Sender: FDA-Public Use
  Company Number: 009246

PATIENT
  Age: 22 Year
  Sex: Male

DRUGS (5)
  1. BUSULFEX [Suspect]
     Indication: STEM CELL TRANSPLANT
  2. CYCLOPHOSPHAMIDE [Concomitant]
  3. CYCLOSPORINE [Concomitant]
  4. METHOTREXATE [Concomitant]
  5. METHYLPREDNISOLONE [Concomitant]

REACTIONS (16)
  - BONE MARROW FAILURE [None]
  - BRAIN ABSCESS [None]
  - BRAIN SCAN ABNORMAL [None]
  - CONDITION AGGRAVATED [None]
  - CONVULSION [None]
  - CYSTITIS HAEMORRHAGIC [None]
  - CYTOMEGALOVIRUS TEST POSITIVE [None]
  - DEPRESSED LEVEL OF CONSCIOUSNESS [None]
  - GASTROINTESTINAL DISORDER [None]
  - GRAFT VERSUS HOST DISEASE [None]
  - INTRACRANIAL PRESSURE INCREASED [None]
  - MUSCULAR WEAKNESS [None]
  - NOCARDIOSIS [None]
  - ORCHITIS [None]
  - PANCYTOPENIA [None]
  - THERAPEUTIC AGENT TOXICITY [None]
